FAERS Safety Report 7106167-9 (Version None)
Quarter: 2010Q4

REPORT INFORMATION
  Report Type: 
  Country: None (occurrence: None)
  Receive Date: 20101116
  Receipt Date: 20101103
  Transmission Date: 20110411
  Serious: Yes (Other)
  Sender: FDA-Public Use
  Company Number: GXKR2010TW12407

PATIENT
  Age: 47 Year
  Sex: Female

DRUGS (3)
  1. CISPLATIN [Suspect]
     Indication: NASOPHARYNGEAL CANCER
     Dosage: 4 COURSES
     Route: 065
  2. FLUOROURACIL [Suspect]
     Indication: NASOPHARYNGEAL CANCER
     Dosage: 4 COURSES
     Route: 065
  3. RADIOTHERAPY [Concomitant]
     Dosage: 7.440 GY IN 62 FRACTIONS

REACTIONS (5)
  - ABNORMAL SENSATION IN EYE [None]
  - DIPLOPIA [None]
  - MYOTONIA [None]
  - SENSORY LOSS [None]
  - STRABISMUS [None]
